FAERS Safety Report 11629249 (Version 1)
Quarter: 2015Q4

REPORT INFORMATION
  Report Type: Spontaneous
  Country: US (occurrence: None)
  Receive Date: 20151013
  Receipt Date: 20151013
  Transmission Date: 20160304
  Serious: Yes (Other)
  Sender: FDA-Public Use
  Company Number: None

PATIENT
  Age: 77 Year
  Sex: Female
  Weight: 56.2 kg

DRUGS (1)
  1. HEPARIN SODIUM 10,000 UNITS/10 ML [Suspect]
     Active Substance: HEPARIN SODIUM
     Indication: SURGERY
     Dosage: WEIGHT BASED DOSE?DURING SURGERY?
     Route: 042
     Dates: start: 20150828

REACTIONS (1)
  - Thrombosis [None]

NARRATIVE: CASE EVENT DATE: 20150828
